FAERS Safety Report 24731583 (Version 1)
Quarter: 2024Q4

REPORT INFORMATION
  Report Type: Spontaneous
  Country: US (occurrence: US)
  Receive Date: 20241213
  Receipt Date: 20241213
  Transmission Date: 20250114
  Serious: Yes (Hospitalization)
  Sender: BOEHRINGER INGELHEIM
  Company Number: US-Komodo Health-a23aa000004jFIMAA2

PATIENT

DRUGS (1)
  1. GILOTRIF [Suspect]
     Active Substance: AFATINIB
     Indication: Product used for unknown indication

REACTIONS (2)
  - Cerebrovascular accident [Not Recovered/Not Resolved]
  - Dysphagia [Not Recovered/Not Resolved]
